FAERS Safety Report 12584854 (Version 3)
Quarter: 2016Q3

REPORT INFORMATION
  Report Type: Report from Study
  Country: CA (occurrence: CA)
  Receive Date: 20160722
  Receipt Date: 20160815
  Transmission Date: 20161109
  Serious: Yes (Hospitalization, Other)
  Sender: FDA-Public Use
  Company Number: CA-TAKEDA-2016TUS012591

PATIENT
  Age: 31 Year
  Sex: Male

DRUGS (1)
  1. VEDOLIZUMAB [Suspect]
     Active Substance: VEDOLIZUMAB
     Indication: CROHN^S DISEASE
     Dosage: 300 MG, UNK
     Route: 042
     Dates: start: 20160708

REACTIONS (5)
  - Obstruction [Unknown]
  - Malaise [Unknown]
  - Volume blood decreased [Unknown]
  - Hernia repair [Unknown]
  - Crohn^s disease [Unknown]

NARRATIVE: CASE EVENT DATE: 201607
